FAERS Safety Report 12674289 (Version 1)
Quarter: 2016Q3

REPORT INFORMATION
  Report Type: Report from Study
  Country: KR (occurrence: KR)
  Receive Date: 20160822
  Receipt Date: 20160822
  Transmission Date: 20161109
  Serious: Yes (Hospitalization)
  Sender: FDA-Public Use
  Company Number: KR-IPCA LABORATORIES LIMITED-IPC201608-000681

PATIENT
  Age: 75 Year
  Sex: Female

DRUGS (2)
  1. LEVOSULPIRIDE [Suspect]
     Active Substance: LEVOSULPIRIDE
  2. METOCLOPRAMIDE HYDROCHLORIDE. [Suspect]
     Active Substance: METOCLOPRAMIDE HYDROCHLORIDE

REACTIONS (3)
  - Cognitive disorder [Unknown]
  - Amnesia [Unknown]
  - Parkinsonism [Unknown]
